FAERS Safety Report 7240745-1 (Version None)
Quarter: 2011Q1

REPORT INFORMATION
  Report Type: 
  Country: None (occurrence: None)
  Receive Date: 20110124
  Receipt Date: 20100512
  Transmission Date: 20110831
  Serious: Yes (Hospitalization)
  Sender: FDA-Public Use
  Company Number: AU-SANOFI-AVENTIS-2010SA027528

PATIENT
  Age: 78 Year
  Sex: Male
  Weight: 86.85 kg

DRUGS (11)
  1. BLINDED THERAPY [Suspect]
     Route: 042
     Dates: start: 20090811, end: 20090811
  2. FISH OIL [Concomitant]
     Dates: start: 20080101
  3. DOCETAXEL [Suspect]
     Route: 042
     Dates: start: 20100105, end: 20100105
  4. WARFARIN [Concomitant]
     Dates: start: 19770101
  5. NEXIUM [Concomitant]
     Dates: start: 20090811
  6. PREDNISONE [Suspect]
     Route: 048
     Dates: start: 20090811, end: 20100203
  7. ATORVASTATIN [Concomitant]
     Dates: start: 20050101
  8. BLINDED THERAPY [Suspect]
     Route: 042
     Dates: start: 20100420, end: 20100420
  9. DOCETAXEL [Suspect]
     Route: 042
     Dates: start: 20090811, end: 20090811
  10. ZOLADEX [Concomitant]
     Indication: HORMONE THERAPY
     Dates: start: 20070101
  11. ATACAND HCT [Concomitant]
     Dates: start: 20040101

REACTIONS (1)
  - GASTRIC ULCER [None]
